FAERS Safety Report 4821759-5 (Version None)
Quarter: 2005Q4

REPORT INFORMATION
  Report Type: 
  Country: None (occurrence: None)
  Receive Date: 20051103
  Receipt Date: 20051027
  Transmission Date: 20060501
  Serious: Yes (Hospitalization)
  Sender: FDA-Public Use
  Company Number: 005924

PATIENT
  Age: 59 Year
  Sex: Female

DRUGS (1)
  1. CHLORZOXAZONE [Suspect]
     Indication: MUSCLE SPASMS
     Dosage: 1 TAB, QD, ORAL
     Route: 048
     Dates: start: 20020101, end: 20051001

REACTIONS (4)
  - ACIDOSIS [None]
  - ASCITES [None]
  - HEPATIC FUNCTION ABNORMAL [None]
  - JAUNDICE [None]
